FAERS Safety Report 15465820 (Version 1)
Quarter: 2018Q4

REPORT INFORMATION
  Report Type: Spontaneous
  Country: US (occurrence: US)
  Receive Date: 20181004
  Receipt Date: 20181004
  Transmission Date: 20190204
  Serious: Yes (Other)
  Sender: FDA-Public Use
  Company Number: US-FOUNDATIONCONSUMERHC-2018-US-011863

PATIENT
  Age: 29 Year
  Sex: Female
  Weight: 99.34 kg

DRUGS (2)
  1. PLAN B ONE-STEP [Suspect]
     Active Substance: LEVONORGESTREL
     Indication: POST COITAL CONTRACEPTION
     Dosage: 1.5 MG
     Route: 048
     Dates: start: 20180617, end: 20180617
  2. LEVONORGESTREL (UNSPECIFIED) [Suspect]
     Active Substance: LEVONORGESTREL
     Indication: POST COITAL CONTRACEPTION
     Dosage: TWICE DURING THE MONTH
     Route: 048
     Dates: start: 201601, end: 201601

REACTIONS (7)
  - Pelvic pain [Not Recovered/Not Resolved]
  - Dizziness [Unknown]
  - Food craving [Not Recovered/Not Resolved]
  - Ectopic pregnancy [Unknown]
  - Nausea [Unknown]
  - Menstruation delayed [Not Recovered/Not Resolved]
  - Drug ineffective [Unknown]

NARRATIVE: CASE EVENT DATE: 2016
